FAERS Safety Report 6845006-8 (Version None)
Quarter: 2010Q3

REPORT INFORMATION
  Report Type: 
  Country: None (occurrence: None)
  Receive Date: 20100713
  Receipt Date: 20100629
  Transmission Date: 20110219
  Serious: Yes (Other)
  Sender: FDA-Public Use
  Company Number: 2010SCPR001150

PATIENT
  Age: 46 Year
  Sex: Female

DRUGS (3)
  1. IMIPRAMINE [Suspect]
     Indication: DYSTHYMIC DISORDER
     Dosage: 75 MG/DAY
  2. ESCITALOPRAM [Suspect]
     Indication: DYSTHYMIC DISORDER
     Dosage: 20 MG, QD
  3. GILBENCLAMIDE (GLIBENCLAMIDE) UNKNOWN [Suspect]
     Indication: TYPE 2 DIABETES MELLITUS
     Dosage: 5 MG, QD, ORAL
     Route: 048

REACTIONS (9)
  - ANHEDONIA [None]
  - ANXIETY [None]
  - BLOOD FOLLICLE STIMULATING HORMONE INCREASED [None]
  - CEREBRAL CYST [None]
  - CONDITION AGGRAVATED [None]
  - DRUG INTERACTION [None]
  - DYSTHYMIC DISORDER [None]
  - GALACTORRHOEA [None]
  - SLEEP DISORDER [None]
